FAERS Safety Report 9272030 (Version 1)
Quarter: 2013Q2

REPORT INFORMATION
  Report Type: Spontaneous
  Country: US (occurrence: US)
  Receive Date: 20130506
  Receipt Date: 20130506
  Transmission Date: 20140414
  Serious: Yes (Death)
  Sender: FDA-Public Use
  Company Number: US-UCBSA-085029

PATIENT
  Age: 52 Year
  Sex: Male

DRUGS (1)
  1. KEPPRA XR [Suspect]
     Indication: CONVULSION
     Dosage: STRENGTH: 500MG
     Dates: end: 201304

REACTIONS (1)
  - Death [Fatal]
